FAERS Safety Report 6801551-2 (Version None)
Quarter: 2010Q2

REPORT INFORMATION
  Report Type: 
  Country: None (occurrence: None)
  Receive Date: 20100629
  Receipt Date: 20100628
  Transmission Date: 20101027
  Serious: Yes (Hospitalization)
  Sender: FDA-Public Use
  Company Number: DE-WYE-G05872010

PATIENT
  Sex: Male

DRUGS (2)
  1. TORISEL [Suspect]
     Indication: METASTATIC RENAL CELL CARCINOMA
     Route: 042
     Dates: start: 20091216, end: 20100105
  2. TORISEL [Suspect]
     Route: 042
     Dates: start: 20100101, end: 20100223

REACTIONS (2)
  - ANAEMIA [None]
  - JAUNDICE [None]
